FAERS Safety Report 12046920 (Version 1)
Quarter: 2016Q1

REPORT INFORMATION
  Report Type: Report from Study
  Country: GB (occurrence: GB)
  Receive Date: 20160209
  Receipt Date: 20160209
  Transmission Date: 20160526
  Serious: Yes (Other)
  Sender: FDA-Public Use
  Company Number: GB-ROCHE-1642793

PATIENT
  Sex: Female

DRUGS (1)
  1. ESBRIET [Suspect]
     Active Substance: PIRFENIDONE
     Indication: IDIOPATHIC PULMONARY FIBROSIS
     Route: 048
     Dates: start: 20140101

REACTIONS (15)
  - Vomiting [Unknown]
  - Paraesthesia [Unknown]
  - Asthenia [Unknown]
  - Joint swelling [Unknown]
  - Decreased appetite [Unknown]
  - Blood pressure decreased [Unknown]
  - Weight decreased [Unknown]
  - Seizure [Unknown]
  - Peripheral swelling [Unknown]
  - Viral infection [Unknown]
  - Oropharyngeal pain [Unknown]
  - Dyspnoea [Unknown]
  - Gastric infection [Unknown]
  - Diarrhoea [Unknown]
  - Malaise [Not Recovered/Not Resolved]
